FAERS Safety Report 15286512 (Version 2)
Quarter: 2018Q3

REPORT INFORMATION
  Report Type: Report from Study
  Country: CA (occurrence: CA)
  Receive Date: 20180816
  Receipt Date: 20180831
  Transmission Date: 20181010
  Serious: Yes (Hospitalization)
  Sender: FDA-Public Use
  Company Number: CA-ACTELION-A-US2018-174106

PATIENT
  Age: 67 Year
  Sex: Female

DRUGS (22)
  1. JUBLIA [Concomitant]
     Active Substance: EFINACONAZOLE
  2. UPTRAVI [Suspect]
     Active Substance: SELEXIPAG
     Dosage: 1000 MCG, UNK
     Route: 048
  3. UPTRAVI [Suspect]
     Active Substance: SELEXIPAG
     Dosage: 1600 MCG, UNK
     Route: 048
  4. OPSUMIT [Suspect]
     Active Substance: MACITENTAN
     Indication: PULMONARY ARTERIAL HYPERTENSION
     Dosage: 10 MG, UNK
     Route: 048
     Dates: start: 20130101
  5. ADCIRCA [Concomitant]
     Active Substance: TADALAFIL
  6. SEEBRI [Concomitant]
     Active Substance: GLYCOPYRRONIUM
     Route: 055
  7. SERTRALINE [Concomitant]
     Active Substance: SERTRALINE HYDROCHLORIDE
     Dosage: 200 MG, UNK
  8. ASA [Concomitant]
     Active Substance: ASPIRIN
     Dosage: 81 MG, UNK
  9. VITAMIN D [Concomitant]
     Active Substance: CHOLECALCIFEROL
     Dosage: 1000 U, QD
  10. REACTINE [Concomitant]
     Dosage: 10 MG, QD
  11. MULTIVITAMIN [Concomitant]
     Active Substance: VITAMINS
  12. BISOPROLOL [Concomitant]
     Active Substance: BISOPROLOL
     Dosage: 2.5 MG, UNK
  13. VITAMIN B12 [Concomitant]
     Active Substance: CYANOCOBALAMIN
  14. UPTRAVI [Suspect]
     Active Substance: SELEXIPAG
     Dosage: 400 MCG, UNK
     Route: 048
  15. FUROSEMIDE. [Concomitant]
     Active Substance: FUROSEMIDE
     Dosage: 80 MG, UNK
  16. UPTRAVI [Suspect]
     Active Substance: SELEXIPAG
     Indication: PULMONARY ARTERIAL HYPERTENSION
     Dosage: 600 MCG, UNK
     Route: 048
     Dates: start: 20180605
  17. UPTRAVI [Suspect]
     Active Substance: SELEXIPAG
     Dosage: 800 MCG, UNK
     Route: 048
  18. LIPITOR [Concomitant]
     Active Substance: ATORVASTATIN CALCIUM
     Dosage: 10 MG, UNK
  19. SYNTHROID [Concomitant]
     Active Substance: LEVOTHYROXINE SODIUM
     Dosage: 75 MG, QD
  20. CALCIUM [Concomitant]
     Active Substance: CALCIUM
     Dosage: 500 MG, QD
  21. RANITIDINE. [Concomitant]
     Active Substance: RANITIDINE
     Dosage: 150 MG, BID
  22. ALDACTONE [Concomitant]
     Active Substance: SPIRONOLACTONE
     Dosage: 25 MG, QD

REACTIONS (13)
  - Drug dose omission [Not Recovered/Not Resolved]
  - Nasopharyngitis [Recovering/Resolving]
  - Weight increased [Unknown]
  - Chest discomfort [Unknown]
  - Decubitus ulcer [Not Recovered/Not Resolved]
  - Sensitivity to weather change [Unknown]
  - Dyspnoea [Not Recovered/Not Resolved]
  - Dizziness [Unknown]
  - Balance disorder [Not Recovered/Not Resolved]
  - Sinus congestion [Recovering/Resolving]
  - Mobility decreased [Not Recovered/Not Resolved]
  - Headache [Recovered/Resolved]
  - Peripheral swelling [Recovering/Resolving]

NARRATIVE: CASE EVENT DATE: 201806
